FAERS Safety Report 9798887 (Version 3)
Quarter: 2015Q3

REPORT INFORMATION
  Report Type: Spontaneous
  Country: US (occurrence: US)
  Receive Date: 20140106
  Receipt Date: 20150806
  Transmission Date: 20151125
  Serious: No
  Sender: FDA-Public Use
  Company Number: US-GILEAD-2010-0033567

PATIENT
  Age: 49 Year
  Sex: Female

DRUGS (2)
  1. LETAIRIS [Suspect]
     Active Substance: AMBRISENTAN
     Indication: PULMONARY ARTERIAL HYPERTENSION
     Route: 048
     Dates: start: 20101105, end: 20101119
  2. LETAIRIS [Suspect]
     Active Substance: AMBRISENTAN
     Dosage: EVERY OTHER DAY
     Route: 048
     Dates: start: 20101120, end: 20101126

REACTIONS (3)
  - Fatigue [Unknown]
  - Swelling [Unknown]
  - Dyspnoea [Unknown]

NARRATIVE: CASE EVENT DATE: 20101107
